FAERS Safety Report 21599812 (Version 1)
Quarter: 2022Q4

REPORT INFORMATION
  Report Type: Spontaneous
  Country: JP (occurrence: JP)
  Receive Date: 20221115
  Receipt Date: 20221115
  Transmission Date: 20230113
  Serious: Yes (Other)
  Sender: FDA-Public Use
  Company Number: JP-STRIDES ARCOLAB LIMITED-2022SP015204

PATIENT
  Age: 53 Year
  Sex: Female
  Weight: 52 kg

DRUGS (4)
  1. METHOTREXATE [Suspect]
     Active Substance: METHOTREXATE
     Indication: Rheumatoid arthritis
     Dosage: UNK, (4-12 MG PER WEEK)
     Route: 065
  2. PREDNISOLONE [Suspect]
     Active Substance: PREDNISOLONE
     Indication: Rheumatoid arthritis
     Dosage: UNK,(0-5 MILLIGRAM PER DAY)
     Route: 048
  3. LOXOPROFEN SODIUM DIHYDRATE [Concomitant]
     Active Substance: LOXOPROFEN SODIUM DIHYDRATE
     Indication: Rheumatoid arthritis
     Dosage: UNK, (A MAXIMUM DOSE OF 120 MILLIGRAM PER DAY)
     Route: 065
  4. FOLIC ACID [Concomitant]
     Active Substance: FOLIC ACID
     Indication: Rheumatoid arthritis
     Dosage: 5 MILLIGRAM, PER WEEK
     Route: 065

REACTIONS (2)
  - Granulomatosis with polyangiitis [Unknown]
  - Epstein-Barr virus associated lymphoproliferative disorder [Recovered/Resolved]
